FAERS Safety Report 18818193 (Version 2)
Quarter: 2021Q1

REPORT INFORMATION
  Report Type: Spontaneous
  Country: MX (occurrence: MX)
  Receive Date: 20210201
  Receipt Date: 20210217
  Transmission Date: 20210419
  Serious: Yes (Other)
  Sender: FDA-Public Use
  Company Number: NVSC2021MX021821

PATIENT
  Sex: Male
  Weight: 53 kg

DRUGS (1)
  1. CO?DIOVAN [Suspect]
     Active Substance: HYDROCHLOROTHIAZIDE\VALSARTAN
     Indication: HYPERTENSION
     Dosage: 1 DF, QD (15 YEARS AGO)
     Route: 048

REACTIONS (5)
  - Product availability issue [Unknown]
  - Sleep disorder [Unknown]
  - Spinal disorder [Unknown]
  - Infarction [Recovered/Resolved]
  - Renal failure [Not Recovered/Not Resolved]
